FAERS Safety Report 5553815-0 (Version None)
Quarter: 2007Q4

REPORT INFORMATION
  Report Type: 
  Country: None (occurrence: None)
  Receive Date: 20071213
  Receipt Date: 20071205
  Transmission Date: 20080405
  Serious: Yes (Hospitalization)
  Sender: FDA-Public Use
  Company Number: US-ELI_LILLY_AND_COMPANY-US200712001222

PATIENT
  Sex: Male
  Weight: 113.38 kg

DRUGS (4)
  1. BYETTA [Suspect]
     Dosage: 5 UG, 2/D
     Route: 058
     Dates: start: 20060101, end: 20060101
  2. BYETTA [Suspect]
     Dosage: 10 UG, 2/D
     Route: 058
     Dates: start: 20060101, end: 20061201
  3. METFORMIN HCL [Concomitant]
     Dosage: UNK, 2/D
     Route: 048
     Dates: start: 20060101
  4. PRANDIN /USA/ [Concomitant]
     Indication: DIABETES MELLITUS
     Dosage: UNK, OTHER
     Route: 048
     Dates: start: 20060101, end: 20061201

REACTIONS (3)
  - BLOOD GLUCOSE INCREASED [None]
  - GASTRIC BANDING [None]
  - WEIGHT DECREASED [None]
